FAERS Safety Report 6311714-0 (Version None)
Quarter: 2009Q3

REPORT INFORMATION
  Report Type: 
  Country: None (occurrence: None)
  Receive Date: 20090813
  Receipt Date: 20090813
  Transmission Date: 20100115
  Serious: Yes (Other)
  Sender: FDA-Public Use
  Company Number: None

PATIENT
  Sex: Female

DRUGS (1)
  1. OCELLA (DROSPIRENONE - ETHINYL ESTRADIOL) 3 MG/ 0.03 MG [Suspect]
     Indication: CONTRACEPTION
     Dosage: 28 TABLETS ACTIVE 21 PILLS 1 X DAY 1 PER MONTH
     Dates: start: 20001225, end: 20090727

REACTIONS (18)
  - ABDOMINAL DISTENSION [None]
  - ABDOMINAL PAIN UPPER [None]
  - CHEST PAIN [None]
  - CYANOSIS [None]
  - DIZZINESS [None]
  - DRUG INEFFECTIVE [None]
  - DYSARTHRIA [None]
  - HAEMATEMESIS [None]
  - HEART RATE DECREASED [None]
  - HYPOTENSION [None]
  - MIGRAINE [None]
  - MOOD ALTERED [None]
  - NEUROPATHY PERIPHERAL [None]
  - PAIN IN EXTREMITY [None]
  - RASH PRURITIC [None]
  - ULCER HAEMORRHAGE [None]
  - VISION BLURRED [None]
  - WEIGHT INCREASED [None]
